FAERS Safety Report 12861317 (Version 1)
Quarter: 2016Q4

REPORT INFORMATION
  Report Type: Spontaneous
  Country: US (occurrence: US)
  Receive Date: 20161019
  Receipt Date: 20161019
  Transmission Date: 20170207
  Serious: No
  Sender: FDA-Public Use
  Company Number: US-TEVA-699937ACC

PATIENT
  Age: 20 Year
  Sex: Female
  Weight: 72.64 kg

DRUGS (2)
  1. HUMOLOG INSULIN [Concomitant]
     Indication: TYPE 1 DIABETES MELLITUS
  2. PLAN B ONE-STEP [Suspect]
     Active Substance: LEVONORGESTREL
     Indication: POST COITAL CONTRACEPTION
     Dates: start: 20160929, end: 20160929

REACTIONS (4)
  - Dizziness [Not Recovered/Not Resolved]
  - Hyperglycaemia [Unknown]
  - Vaginal haemorrhage [Not Recovered/Not Resolved]
  - Diabetic neuropathy [Unknown]

NARRATIVE: CASE EVENT DATE: 20160930
